FAERS Safety Report 12165450 (Version 2)
Quarter: 2016Q1

REPORT INFORMATION
  Report Type: Report from Study
  Country: DE (occurrence: DE)
  Receive Date: 20160309
  Receipt Date: 20160315
  Transmission Date: 20160526
  Serious: Yes (Other)
  Sender: FDA-Public Use
  Company Number: PHHY2016DE028547

PATIENT
  Sex: Female

DRUGS (1)
  1. COSENTYX [Suspect]
     Active Substance: SECUKINUMAB
     Indication: PSORIASIS
     Dosage: 300 MG
     Route: 058
     Dates: start: 20160121

REACTIONS (5)
  - Movement disorder [Recovering/Resolving]
  - Bronchitis [Unknown]
  - Arthralgia [Recovering/Resolving]
  - Rheumatic disorder [Unknown]
  - Musculoskeletal stiffness [Recovering/Resolving]
